FAERS Safety Report 7219542-9 (Version None)
Quarter: 2011Q1

REPORT INFORMATION
  Report Type: 
  Country: None (occurrence: None)
  Receive Date: 20110111
  Receipt Date: 20101231
  Transmission Date: 20110831
  Serious: Yes (Hospitalization)
  Sender: FDA-Public Use
  Company Number: FR-SANOFI-AVENTIS-2011SA000383

PATIENT
  Age: 89 Year
  Sex: Male

DRUGS (5)
  1. DIAMICRON [Suspect]
     Route: 065
  2. LASIX [Suspect]
     Route: 065
     Dates: end: 20100528
  3. TRIATEC [Suspect]
     Route: 065
  4. PREVISCAN [Suspect]
     Indication: AORTIC VALVE REPLACEMENT
     Route: 048
     Dates: start: 19920101, end: 20100528
  5. VERAPAMIL HYDROCHLORIDE [Suspect]
     Route: 065

REACTIONS (1)
  - RECTAL HAEMORRHAGE [None]
